FAERS Safety Report 6376326-1 (Version None)
Quarter: 2009Q3

REPORT INFORMATION
  Report Type: 
  Country: None (occurrence: None)
  Receive Date: 20090925
  Receipt Date: 20090922
  Transmission Date: 20100115
  Serious: Yes (Other)
  Sender: FDA-Public Use
  Company Number: US-TEVA-210169USA

PATIENT
  Sex: Female

DRUGS (2)
  1. CLARAVIS [Suspect]
     Route: 048
     Dates: start: 20090819, end: 20090922
  2. CLARAVIS [Suspect]
     Route: 048
     Dates: start: 20080325, end: 20080805

REACTIONS (1)
  - UNINTENDED PREGNANCY [None]
